FAERS Safety Report 4301634-5 (Version None)
Quarter: 2004Q1

REPORT INFORMATION
  Report Type: 
  Country: None (occurrence: None)
  Receive Date: 20040223
  Receipt Date: 20040206
  Transmission Date: 20041129
  Serious: Yes (Hospitalization, Other)
  Sender: FDA-Public Use
  Company Number: ZA-BRISTOL-MYERS SQUIBB COMPANY-12499893

PATIENT
  Age: 32 Month
  Sex: Female

DRUGS (3)
  1. EFAVIRENZ [Suspect]
     Indication: HIV INFECTION
     Dates: start: 20031007
  2. ZIDOVUDINE [Suspect]
     Indication: HIV INFECTION
     Dates: start: 20031007
  3. LAMIVUDINE [Suspect]
     Indication: HIV INFECTION
     Dates: start: 20031007

REACTIONS (2)
  - IMMUNE RECONSTITUTION SYNDROME [None]
  - PNEUMONIA [None]
